FAERS Safety Report 5177593-2 (Version None)
Quarter: 2006Q4

REPORT INFORMATION
  Report Type: 
  Country: None (occurrence: None)
  Receive Date: 20061218
  Receipt Date: 20061207
  Transmission Date: 20070319
  Serious: Yes (Hospitalization)
  Sender: FDA-Public Use
  Company Number: US-AMGEN-US202895

PATIENT
  Sex: Female

DRUGS (1)
  1. ENBREL [Suspect]
     Indication: RHEUMATOID ARTHRITIS
     Route: 058
     Dates: start: 20040403

REACTIONS (6)
  - GASTRIC ULCER [None]
  - HEADACHE [None]
  - NAUSEA [None]
  - PAIN [None]
  - SCAR [None]
  - SNEEZING [None]
